FAERS Safety Report 6500624-1 (Version None)
Quarter: 2009Q4

REPORT INFORMATION
  Report Type: 
  Country: None (occurrence: None)
  Receive Date: 20091216
  Receipt Date: 20081207
  Transmission Date: 20100525
  Serious: No
  Sender: FDA-Public Use
  Company Number: A0759763A

PATIENT
  Age: 27 Year
  Sex: Male

DRUGS (1)
  1. COMMIT [Suspect]

REACTIONS (4)
  - BURNING SENSATION [None]
  - DISCOMFORT [None]
  - GLOSSODYNIA [None]
  - OROPHARYNGEAL PAIN [None]
